FAERS Safety Report 9008351 (Version 1)
Quarter: 2013Q1

REPORT INFORMATION
  Report Type: Spontaneous
  Country: FR (occurrence: FR)
  Receive Date: 20130111
  Receipt Date: 20130111
  Transmission Date: 20140127
  Serious: Yes (Hospitalization)
  Sender: FDA-Public Use
  Company Number: FR-BAYER-2013-003543

PATIENT
  Age: 84 Year
  Sex: Female

DRUGS (1)
  1. CIFLOX [Suspect]
     Indication: CYSTITIS
     Dosage: 250 MG, QD
     Route: 048
     Dates: start: 20120812, end: 20120822

REACTIONS (3)
  - Confusional state [Recovered/Resolved]
  - Negativism [Recovered/Resolved]
  - Aggression [Recovered/Resolved]
